FAERS Safety Report 13498551 (Version 1)
Quarter: 2017Q2

REPORT INFORMATION
  Report Type: Spontaneous
  Country: CN (occurrence: CN)
  Receive Date: 20170501
  Receipt Date: 20170501
  Transmission Date: 20170830
  Serious: Yes (Hospitalization)
  Sender: FDA-Public Use
  Company Number: CN-BION-006224

PATIENT
  Age: 61 Year
  Sex: Female

DRUGS (5)
  1. OMEPRAZOLE. [Concomitant]
     Active Substance: OMEPRAZOLE
     Indication: GASTRIC PH INCREASED
  2. VALPROIC ACID UNKNOWN PRODUCT [Suspect]
     Active Substance: VALPROIC ACID
     Indication: SEIZURE
     Dosage: 500 MG BID FOR 3 DAYS BEFORE SURGERY THAN 800 MG THAN 500 MG BID FOR 7 DAYS?ALSO RECEIVED IV
     Route: 048
  3. THIAMINE. [Concomitant]
     Active Substance: THIAMINE
  4. LACTULOSE. [Concomitant]
     Active Substance: LACTULOSE
  5. ARGININE [Concomitant]
     Active Substance: ARGININE

REACTIONS (2)
  - Hyperammonaemic encephalopathy [Recovered/Resolved]
  - Coma [Recovered/Resolved]
